FAERS Safety Report 8686628 (Version 2)
Quarter: 2012Q4

REPORT INFORMATION
  Report Type: 
  Country: BR (occurrence: BR)
  Receive Date: 20120727
  Receipt Date: 20121212
  Transmission Date: 20130627
  Serious: Yes (Hospitalization, Other)
  Sender: FDA-Public Use
  Company Number: BR-AMGEN-BRASP2012045203

PATIENT
  Age: 51 Year
  Sex: Female
  Weight: 83 kg

DRUGS (16)
  1. ENBREL [Suspect]
     Indication: RHEUMATOID ARTHRITIS
     Dosage: UNK
     Route: 058
     Dates: start: 201110, end: 201112
  2. ENBREL [Suspect]
     Dosage: 50 mg, qwk
     Dates: start: 201201, end: 201201
  3. ENBREL [Suspect]
     Dosage: 50 mg, qwk
     Route: 058
     Dates: start: 201111, end: 201211
  4. METHOTREXATE [Concomitant]
     Dosage: strength 0.6mg
  5. METHOTREXATE [Concomitant]
     Dosage: strength 10mg
  6. METHOTREXATE [Concomitant]
     Dosage: 20 mg, UNK
  7. OMEPRAZOLE [Concomitant]
     Dosage: strength 20mg
  8. NIMESULIDE [Concomitant]
     Dosage: strength 50mg
  9. LOSARTAN [Concomitant]
     Dosage: strength 50mg
  10. HYDROCHLOROTHIAZIDE [Concomitant]
     Dosage: strength 25mg
  11. PARACETAMOL [Concomitant]
     Dosage: UNK UNK, UNK
  12. FOLIC ACID [Concomitant]
     Dosage: UNK UNK, UNK
  13. CODEINE [Concomitant]
     Dosage: UNK UNK, UNK
  14. TRAMAL [Concomitant]
     Dosage: UNK
  15. COLTRAX [Concomitant]
     Dosage: UNK
  16. CELEBRA [Concomitant]
     Dosage: UNK

REACTIONS (11)
  - Burning sensation [Unknown]
  - Immunosuppression [Not Recovered/Not Resolved]
  - Chest pain [Unknown]
  - Herpes zoster [Unknown]
  - Influenza [Unknown]
  - Candidiasis [Unknown]
  - Oropharyngeal pain [Unknown]
  - Cough [Unknown]
  - Pyrexia [Recovered/Resolved]
  - Pain [Unknown]
  - Secretion discharge [Unknown]
